FAERS Safety Report 23856869 (Version 1)
Quarter: 2024Q2

REPORT INFORMATION
  Report Type: Spontaneous
  Country: US (occurrence: US)
  Receive Date: 20240515
  Receipt Date: 20240515
  Transmission Date: 20240715
  Serious: No
  Sender: FDA-Public Use
  Company Number: US-CHIESI-2024CHF01880

PATIENT
  Weight: 119 kg

DRUGS (1)
  1. ELFABRIO [Suspect]
     Active Substance: PEGUNIGALSIDASE ALFA-IWXJ
     Indication: Product used for unknown indication
     Dosage: 0.476 UNK
     Route: 042

REACTIONS (3)
  - Hypervolaemia [Unknown]
  - Off label use [Unknown]
  - Prescribed overdose [Unknown]
